FAERS Safety Report 6167657-9 (Version None)
Quarter: 2009Q2

REPORT INFORMATION
  Report Type: 
  Country: None (occurrence: None)
  Receive Date: 20090424
  Receipt Date: 20090423
  Transmission Date: 20091009
  Serious: Yes (Death, Other)
  Sender: FDA-Public Use
  Company Number: PHHY2009JP08674

PATIENT
  Sex: Female
  Weight: 53 kg

DRUGS (4)
  1. DIOVAN T30230+TAB+HY [Suspect]
     Indication: HYPERTENSION
     Dosage: 160 MG, QD
     Route: 048
     Dates: start: 20080313, end: 20081127
  2. ATELEC [Concomitant]
     Indication: HYPERTENSION
     Dosage: 10 MG
     Route: 048
     Dates: start: 20060101, end: 20080303
  3. PREDONINE [Concomitant]
     Dosage: 20 MG
     Route: 048
     Dates: start: 20080306, end: 20081222
  4. GASTER [Concomitant]
     Dosage: 20 MG
     Route: 048
     Dates: start: 20080310, end: 20081222

REACTIONS (6)
  - BLOOD CREATININE INCREASED [None]
  - BLOOD UREA INCREASED [None]
  - CONDITION AGGRAVATED [None]
  - DYSPHAGIA [None]
  - INTERSTITIAL LUNG DISEASE [None]
  - MUSCULOSKELETAL STIFFNESS [None]
